APPROVED DRUG PRODUCT: ROPINIROLE HYDROCHLORIDE
Active Ingredient: ROPINIROLE HYDROCHLORIDE
Strength: EQ 2MG BASE
Dosage Form/Route: TABLET, EXTENDED RELEASE;ORAL
Application: A091395 | Product #001 | TE Code: AB
Applicant: CHARTWELL RX SCIENCES LLC
Approved: Aug 27, 2012 | RLD: No | RS: No | Type: RX